FAERS Safety Report 24162269 (Version 1)
Quarter: 2024Q3

REPORT INFORMATION
  Report Type: Spontaneous
  Country: CN (occurrence: CN)
  Receive Date: 20240801
  Receipt Date: 20240801
  Transmission Date: 20241016
  Serious: Yes (Other)
  Sender: PFIZER
  Company Number: CN-PFIZER INC-PV202400098862

PATIENT
  Age: 44 Year
  Sex: Female
  Weight: 49.7 kg

DRUGS (6)
  1. EPIRUBICIN [Suspect]
     Active Substance: EPIRUBICIN
     Indication: Chemotherapy
     Dosage: 140 MG, 1X/DAY
     Route: 041
     Dates: start: 20240719, end: 20240719
  2. EPIRUBICIN [Suspect]
     Active Substance: EPIRUBICIN
     Indication: Breast cancer female
  3. CYCLOPHOSPHAMIDE [Suspect]
     Active Substance: CYCLOPHOSPHAMIDE
     Indication: Chemotherapy
     Dosage: 870 MG, 1X/DAY
     Route: 041
     Dates: start: 20240719, end: 20240719
  4. CYCLOPHOSPHAMIDE [Suspect]
     Active Substance: CYCLOPHOSPHAMIDE
     Indication: Breast cancer female
  5. SODIUM CHLORIDE [Concomitant]
     Active Substance: SODIUM CHLORIDE
     Indication: Vehicle solution use
     Dosage: 100 ML, 1X/DAY (+ EPIRUBICIN)
     Route: 041
     Dates: start: 20240719, end: 20240719
  6. SODIUM CHLORIDE [Concomitant]
     Active Substance: SODIUM CHLORIDE
     Dosage: 100 ML, 1X/DAY (+ CYCLOPHOSPHAMIDE)
     Route: 041
     Dates: start: 20240719, end: 20240719

REACTIONS (3)
  - Hypocalcaemia [Recovering/Resolving]
  - Initial insomnia [Recovering/Resolving]
  - Poor quality sleep [Recovering/Resolving]

NARRATIVE: CASE EVENT DATE: 20240720
